FAERS Safety Report 21351557 (Version 3)
Quarter: 2022Q4

REPORT INFORMATION
  Report Type: Spontaneous
  Country: PT (occurrence: PT)
  Receive Date: 20220919
  Receipt Date: 20221025
  Transmission Date: 20230112
  Serious: Yes (Other)
  Sender: FDA-Public Use
  Company Number: PT-009507513-2209PRT004308

PATIENT
  Age: 63 Year
  Sex: Male

DRUGS (3)
  1. KEYTRUDA [Suspect]
     Active Substance: PEMBROLIZUMAB
     Indication: Oropharyngeal cancer
     Dosage: 200 MILLIGRAM, EVERY 3 WEEKS
     Dates: start: 20220408
  2. CARBOPLATIN [Concomitant]
     Active Substance: CARBOPLATIN
     Indication: Oropharyngeal cancer
     Dosage: 1000 UNK
     Dates: start: 20220408
  3. FLUOROURACIL [Concomitant]
     Active Substance: FLUOROURACIL
     Indication: Oropharyngeal cancer
     Dosage: 1000MG/M2
     Dates: start: 20220408

REACTIONS (2)
  - Subclavian vein thrombosis [Unknown]
  - Oedema peripheral [Unknown]

NARRATIVE: CASE EVENT DATE: 20220101
